FAERS Safety Report 26068227 (Version 1)
Quarter: 2025Q4

REPORT INFORMATION
  Report Type: Spontaneous
  Country: CA (occurrence: CA)
  Receive Date: 20251120
  Receipt Date: 20251120
  Transmission Date: 20260119
  Serious: Yes (Death)
  Sender: TANVEX BIOLOGICS
  Company Number: CA-TANVEX BIOPHARMA USA, INC-2025CA006358

PATIENT

DRUGS (1)
  1. NYPOZI [Suspect]
     Active Substance: FILGRASTIM-TXID
     Indication: Chemotherapy
     Dosage: UNK
     Route: 058
     Dates: start: 20250617

REACTIONS (1)
  - Death [Fatal]
